FAERS Safety Report 12666584 (Version 8)
Quarter: 2017Q2

REPORT INFORMATION
  Report Type: Report from Study
  Country: JP (occurrence: JP)
  Receive Date: 20160819
  Receipt Date: 20170421
  Transmission Date: 20170830
  Serious: Yes (Other)
  Sender: FDA-Public Use
  Company Number: JP-AMGEN-JPNCT2016108339

PATIENT
  Age: 70 Year
  Sex: Male
  Weight: 48.6 kg

DRUGS (47)
  1. 5-FU [Suspect]
     Active Substance: FLUOROURACIL
     Indication: RECTOSIGMOID CANCER STAGE IV
     Dosage: 600 MG, Q2WK
     Route: 040
     Dates: start: 20160106, end: 20160322
  2. 5-FU [Suspect]
     Active Substance: FLUOROURACIL
     Dosage: 4600 MG, Q2WK
     Route: 041
     Dates: start: 20160106, end: 20160322
  3. 5-FU [Suspect]
     Active Substance: FLUOROURACIL
     Dosage: 2000 MG/M2, Q2WEEKS
     Route: 041
     Dates: start: 20160419, end: 20160419
  4. NEXIUM [Concomitant]
     Active Substance: ESOMEPRAZOLE MAGNESIUM
     Indication: METASTASES TO LIVER
  5. NEXIUM [Concomitant]
     Active Substance: ESOMEPRAZOLE MAGNESIUM
     Indication: METASTASES TO LUNG
  6. PROHEPARUM [Concomitant]
     Active Substance: CHOLINE BITARTRATE\CYSTEINE\INOSITOL\MAMMAL LIVER
     Indication: RECTOSIGMOID CANCER STAGE IV
     Dosage: 1 DF, TID
     Route: 048
     Dates: start: 20151224
  7. PROHEPARUM [Concomitant]
     Active Substance: CHOLINE BITARTRATE\CYSTEINE\INOSITOL\MAMMAL LIVER
     Indication: METASTASES TO LUNG
  8. PANITUMUMAB [Suspect]
     Active Substance: PANITUMUMAB
     Indication: RECTOSIGMOID CANCER STAGE IV
     Dosage: 280 MG, Q2WK
     Route: 041
     Dates: start: 20160106, end: 20160209
  9. ELPLAT [Suspect]
     Active Substance: OXALIPLATIN
     Indication: RECTOSIGMOID CANCER STAGE IV
     Dosage: 120 MG, Q2WEEKS
     Route: 041
     Dates: start: 20160106, end: 20160322
  10. CALCIUM LEVOFOLINATE [Concomitant]
     Active Substance: LEVOLEUCOVORIN CALCIUM
     Dosage: UNK
     Route: 041
     Dates: start: 20160906
  11. MIYA-BM [Concomitant]
     Active Substance: CLOSTRIDIUM BUTYRICUM SPORES STRAIN M-55
     Indication: RECTOSIGMOID CANCER STAGE IV
     Dosage: 2 G, TID
     Route: 048
     Dates: start: 20151224
  12. SYMBICORT [Concomitant]
     Active Substance: BUDESONIDE\FORMOTEROL FUMARATE DIHYDRATE
     Dosage: 2 DF, BID
     Route: 050
     Dates: start: 20160114
  13. 5-FU                               /00098801/ [Suspect]
     Active Substance: FLUOROURACIL
     Indication: METASTASES TO LIVER
     Dosage: 2000 MG/M2, Q2WEEKS
     Route: 041
     Dates: start: 20160419, end: 20160419
  14. 5-FU [Suspect]
     Active Substance: FLUOROURACIL
     Dosage: 2000 MG/M2, Q2WEEKS
     Route: 041
     Dates: start: 20160517, end: 20160823
  15. 5-FU [Suspect]
     Active Substance: FLUOROURACIL
     Dosage: UNK
     Route: 042
     Dates: start: 20160906
  16. 5-FU [Suspect]
     Active Substance: FLUOROURACIL
     Dosage: UNK
     Route: 042
     Dates: start: 20170308
  17. CALCIUM LEVOFOLINATE [Concomitant]
     Active Substance: LEVOLEUCOVORIN CALCIUM
     Indication: METASTASES TO LUNG
     Dosage: 300 MG, Q2WEEKS
     Route: 041
     Dates: start: 20160517, end: 20160823
  18. DECADRON [Concomitant]
     Active Substance: DEXAMETHASONE
     Indication: PROPHYLAXIS
     Dosage: 6.6 MG, Q2WEEKS
     Route: 042
     Dates: start: 20160106
  19. 5-FU                               /00098801/ [Suspect]
     Active Substance: FLUOROURACIL
     Dosage: UNK
     Route: 041
     Dates: start: 20160906
  20. PANITUMUMAB [Suspect]
     Active Substance: PANITUMUMAB
     Dosage: UNK
     Route: 041
     Dates: start: 20160906
  21. ALOXI [Concomitant]
     Active Substance: PALONOSETRON HYDROCHLORIDE
     Indication: PROPHYLAXIS
     Dosage: 0.75 MG, Q2WEEKS
     Route: 042
     Dates: start: 20160106
  22. K-SUPPLY [Concomitant]
     Active Substance: POTASSIUM CHLORIDE
     Indication: HYPOKALAEMIA
     Dosage: 600 MG, BID
     Route: 048
     Dates: start: 20151224
  23. PROHEPARUM [Concomitant]
     Active Substance: CHOLINE BITARTRATE\CYSTEINE\INOSITOL\MAMMAL LIVER
     Indication: METASTASES TO LIVER
  24. PANITUMUMAB [Suspect]
     Active Substance: PANITUMUMAB
     Dosage: 280 MG, Q2WEEKS
     Route: 041
     Dates: start: 20160517, end: 20160712
  25. ELPLAT [Suspect]
     Active Substance: OXALIPLATIN
     Indication: METASTASES TO LIVER
     Dosage: UNK
     Route: 041
     Dates: start: 20160906
  26. CALCIUM LEVOFOLINATE [Concomitant]
     Active Substance: LEVOLEUCOVORIN CALCIUM
     Indication: RECTOSIGMOID CANCER STAGE IV
     Dosage: 300 MG, Q2WEEKS
     Route: 041
     Dates: start: 20160106, end: 20160322
  27. MIYA-BM [Concomitant]
     Active Substance: CLOSTRIDIUM BUTYRICUM SPORES STRAIN M-55
     Indication: METASTASES TO LUNG
  28. NEXIUM [Concomitant]
     Active Substance: ESOMEPRAZOLE MAGNESIUM
     Indication: RECTOSIGMOID CANCER STAGE IV
     Dosage: 20 MG, QD
     Route: 048
     Dates: start: 20151224
  29. 5-FU                               /00098801/ [Suspect]
     Active Substance: FLUOROURACIL
     Indication: METASTASES TO LUNG
     Dosage: 2000 MG/M2, Q2WEEKS
     Route: 041
     Dates: start: 20160517, end: 20160823
  30. 5-FU [Suspect]
     Active Substance: FLUOROURACIL
     Dosage: 200 MG/M2, Q2WK
     Route: 040
     Dates: start: 20160419, end: 20160419
  31. POLARAMINE [Concomitant]
     Active Substance: DEXCHLORPHENIRAMINE MALEATE
     Indication: PROPHYLAXIS
     Dosage: 5 MG, Q2WEEKS
     Route: 042
     Dates: start: 20160106
  32. URSODEOXYCHOLIC ACID [Concomitant]
     Active Substance: URSODIOL
     Indication: METASTASES TO LIVER
  33. SENNOSIDE [Concomitant]
     Active Substance: SENNOSIDES
     Indication: CONSTIPATION
     Dosage: 12 MG, UNK
     Route: 048
     Dates: start: 20160106
  34. 5-FU                               /00098801/ [Suspect]
     Active Substance: FLUOROURACIL
     Indication: RECTOSIGMOID CANCER STAGE IV
     Dosage: 4600 MG, Q2WEEKS
     Route: 041
     Dates: start: 20160106, end: 20160322
  35. PANITUMUMAB [Suspect]
     Active Substance: PANITUMUMAB
     Indication: METASTASES TO LIVER
     Dosage: 280 MG, Q2WEEKS
     Route: 041
     Dates: start: 20160322, end: 20160322
  36. 5-FU [Suspect]
     Active Substance: FLUOROURACIL
     Dosage: 200 MG/M2, Q2WK
     Route: 040
     Dates: start: 20160517, end: 20160823
  37. CALCIUM LEVOFOLINATE [Concomitant]
     Active Substance: LEVOLEUCOVORIN CALCIUM
     Dosage: UNK
     Route: 041
     Dates: start: 20170308
  38. ZANTAC [Concomitant]
     Active Substance: RANITIDINE HYDROCHLORIDE
     Indication: PROPHYLAXIS
     Dosage: 50 MG, Q2WEEKS
     Route: 042
     Dates: start: 20160106
  39. MIYA-BM [Concomitant]
     Active Substance: CLOSTRIDIUM BUTYRICUM SPORES STRAIN M-55
     Indication: METASTASES TO LIVER
  40. 5-FU                               /00098801/ [Suspect]
     Active Substance: FLUOROURACIL
     Dosage: UNK
     Route: 041
     Dates: start: 20170308
  41. PANITUMUMAB [Suspect]
     Active Substance: PANITUMUMAB
     Indication: METASTASES TO LUNG
     Dosage: 280 MG, Q2WEEKS
     Route: 041
     Dates: start: 20160419, end: 20160419
  42. ELPLAT [Suspect]
     Active Substance: OXALIPLATIN
     Indication: METASTASES TO LUNG
  43. CALCIUM LEVOFOLINATE [Concomitant]
     Active Substance: LEVOLEUCOVORIN CALCIUM
     Indication: METASTASES TO LIVER
     Dosage: 300 MG, Q2WEEKS
     Route: 041
     Dates: start: 20160419, end: 20160419
  44. URSODEOXYCHOLIC ACID [Concomitant]
     Active Substance: URSODIOL
     Indication: RECTOSIGMOID CANCER STAGE IV
     Dosage: 100 MG, TID
     Route: 048
     Dates: start: 20151221
  45. URSODEOXYCHOLIC ACID [Concomitant]
     Active Substance: URSODIOL
     Indication: METASTASES TO LUNG
  46. MINOCYCLINE HYDROCHLORIDE. [Concomitant]
     Active Substance: MINOCYCLINE HYDROCHLORIDE
     Indication: PROPHYLAXIS
     Dosage: 50 MG, BID
     Route: 048
     Dates: start: 20160126
  47. BESOFTEN [Concomitant]
     Active Substance: PENTOSAN POLYSULFATE SODIUM
     Indication: PROPHYLAXIS
     Dosage: UNK
     Route: 062
     Dates: start: 20151218

REACTIONS (19)
  - Alopecia [Not Recovered/Not Resolved]
  - Neutrophil count decreased [Recovered/Resolved]
  - Peripheral sensory neuropathy [Not Recovered/Not Resolved]
  - Hypomagnesaemia [Recovered/Resolved]
  - Oedema [Recovered/Resolved]
  - Hypomagnesaemia [Recovered/Resolved]
  - Condition aggravated [Recovered/Resolved]
  - Dysgeusia [Not Recovered/Not Resolved]
  - Weight decreased [Recovered/Resolved]
  - Hyperkalaemia [Recovered/Resolved]
  - Malaise [Recovered/Resolved]
  - Platelet count decreased [Recovered/Resolved]
  - Nausea [Recovered/Resolved]
  - Dry skin [Not Recovered/Not Resolved]
  - White blood cell count decreased [Recovered/Resolved]
  - Condition aggravated [Recovered/Resolved]
  - Stomatitis [Recovered/Resolved]
  - Vomiting [Recovered/Resolved]
  - Decreased appetite [Recovered/Resolved]

NARRATIVE: CASE EVENT DATE: 20160108
